FAERS Safety Report 9282092 (Version 1)
Quarter: 2013Q2

REPORT INFORMATION
  Report Type: Spontaneous
  Country: US (occurrence: None)
  Receive Date: 20130508
  Receipt Date: 20130508
  Transmission Date: 20140414
  Serious: Yes (Hospitalization)
  Sender: FDA-Public Use
  Company Number: None

PATIENT
  Age: 51 Year
  Sex: Female
  Weight: 76.3 kg

DRUGS (2)
  1. VANCOMYCIN [Suspect]
     Indication: PNEUMONIA
     Route: 042
     Dates: start: 20110131
  2. PIPERACILLIN/TAZOBACTAM [Suspect]
     Indication: PNEUMONIA
     Route: 042

REACTIONS (8)
  - Skin exfoliation [None]
  - Toxic epidermal necrolysis [None]
  - Stevens-Johnson syndrome [None]
  - Mental status changes [None]
  - Aneurysm [None]
  - Bacteraemia [None]
  - Urinary tract infection [None]
  - Meningitis [None]
